FAERS Safety Report 7559595-1 (Version None)
Quarter: 2011Q2

REPORT INFORMATION
  Report Type: 
  Country: None (occurrence: None)
  Receive Date: 20110621
  Receipt Date: 20110617
  Transmission Date: 20111010
  Serious: Yes (Other)
  Sender: FDA-Public Use
  Company Number: CH-PFIZER INC-CH-WYE-G06220410

PATIENT
  Age: 34 Year
  Sex: Female

DRUGS (8)
  1. ESCITALOPRAM [Suspect]
     Dosage: 5 MG, 1X/DAY
     Route: 065
     Dates: start: 20090101, end: 20090806
  2. TRAZODONE HCL [Suspect]
     Dosage: 50 MG, 1X/PRN
     Dates: start: 20080101, end: 20090201
  3. EFFEXOR XR [Suspect]
     Indication: DEPRESSION
     Dosage: 75 MG, 1X/DAY
     Dates: start: 20081201, end: 20090201
  4. OXAZEPAM [Suspect]
     Dosage: 15 MG, 1X/DAY
     Dates: start: 20090201, end: 20090201
  5. BUSPAR [Suspect]
     Dosage: 10 MG, 3X/DAY
     Dates: start: 20080101, end: 20090201
  6. CANNABIS [Concomitant]
     Route: 065
  7. ETHANOL [Suspect]
     Dosage: EPISODICALLY DURING THE PREGNANCY
     Route: 065
  8. ESCITALOPRAM [Suspect]
     Indication: DEPRESSION
     Dosage: 10 MG, 1X/DAY
     Route: 065
     Dates: start: 20090201, end: 20090201

REACTIONS (1)
  - POSTPARTUM HAEMORRHAGE [None]
